FAERS Safety Report 19832413 (Version 2)
Quarter: 2021Q4

REPORT INFORMATION
  Report Type: Spontaneous
  Country: JP (occurrence: JP)
  Receive Date: 20210915
  Receipt Date: 20211124
  Transmission Date: 20220303
  Serious: No
  Sender: FDA-Public Use
  Company Number: JP-SA-2021SA299892

PATIENT
  Age: 37 Year
  Sex: Male
  Weight: 96.8 kg

DRUGS (2)
  1. DUPIXENT [Suspect]
     Active Substance: DUPILUMAB
     Indication: Dermatitis atopic
     Dosage: 300 MG, QOW
     Route: 058
     Dates: start: 20210716
  2. MYSER [DIFLUPREDNATE] [Concomitant]
     Indication: Dermatitis atopic
     Dosage: UNK UNK, BID
     Route: 061
     Dates: start: 19900822

REACTIONS (6)
  - Coronavirus infection [Recovered/Resolved]
  - Productive cough [Recovered/Resolved]
  - Chest pain [Recovered/Resolved]
  - Haemoptysis [Recovered/Resolved]
  - Dyspnoea [Recovered/Resolved]
  - Malaise [Recovered/Resolved]

NARRATIVE: CASE EVENT DATE: 20210808
